FAERS Safety Report 8917544 (Version 1)
Quarter: 2012Q4

REPORT INFORMATION
  Report Type: 
  Country: BE (occurrence: BE)
  Receive Date: 20121120
  Receipt Date: 20121120
  Transmission Date: 20130627
  Serious: Yes (Other)
  Sender: FDA-Public Use
  Company Number: BE-ROCHE-1154018

PATIENT
  Age: 68 Year
  Sex: Female
  Weight: 54 kg

DRUGS (18)
  1. HERCEPTIN [Suspect]
     Indication: BREAST CANCER METASTATIC
     Dosage: 18 administrations
     Route: 065
     Dates: start: 201003, end: 201009
  2. HERCEPTIN [Suspect]
     Dosage: 12 administrations
     Route: 065
     Dates: start: 201112, end: 201203
  3. HERCEPTIN [Suspect]
     Route: 065
     Dates: start: 201203, end: 201210
  4. HERCEPTIN [Suspect]
     Route: 065
  5. XELODA [Suspect]
     Indication: BREAST CANCER METASTATIC
     Route: 065
     Dates: start: 201102, end: 201105
  6. TAXOL [Suspect]
     Indication: BREAST CANCER METASTATIC
     Dosage: 18 administrations
     Route: 065
     Dates: start: 201003, end: 201009
  7. TAXOL [Suspect]
     Dosage: 12 administrations
     Route: 065
     Dates: start: 201112, end: 201203
  8. LAPATINIB [Suspect]
     Indication: BREAST CANCER METASTATIC
     Route: 065
     Dates: start: 201102, end: 201105
  9. NAVELBINE [Suspect]
     Indication: BREAST CANCER METASTATIC
     Dosage: 10 administrations
     Route: 065
     Dates: start: 201105, end: 201109
  10. TAXOTERE [Suspect]
     Indication: BREAST CANCER METASTATIC
     Route: 065
  11. GEMCITABINE [Suspect]
     Indication: BREAST CANCER METASTATIC
     Dosage: 2 cycles
     Route: 065
     Dates: start: 201203, end: 201210
  12. CYCLOFOSFAMIDE [Concomitant]
     Route: 065
     Dates: start: 200902, end: 200906
  13. CARBOPLATIN [Concomitant]
     Dosage: 2 cycles
     Route: 065
     Dates: start: 201203, end: 201210
  14. FEMARA [Concomitant]
     Route: 065
     Dates: start: 200906, end: 201003
  15. AROMASIN [Concomitant]
     Route: 065
     Dates: start: 201009, end: 201102
  16. TAMOXIFEN [Concomitant]
     Route: 065
     Dates: start: 201109, end: 201112
  17. PROVERA [Concomitant]
     Route: 065
     Dates: start: 201203, end: 201209
  18. MYOCET [Concomitant]

REACTIONS (2)
  - Disease progression [Unknown]
  - Drug ineffective [Unknown]
